FAERS Safety Report 18304835 (Version 1)
Quarter: 2020Q3

REPORT INFORMATION
  Report Type: Spontaneous
  Country: JP (occurrence: JP)
  Receive Date: 20200923
  Receipt Date: 20200923
  Transmission Date: 20201103
  Serious: Yes (Death, Other)
  Sender: FDA-Public Use
  Company Number: JP-SYNEX-T202004654

PATIENT
  Sex: Female
  Weight: 3 kg

DRUGS (2)
  1. INOFLO [Suspect]
     Active Substance: NITRIC OXIDE
     Indication: PULMONARY HYPERTENSION
     Dosage: UNK (INHALATION)
     Route: 055
  2. BOSENTAN. [Suspect]
     Active Substance: BOSENTAN
     Indication: PULMONARY HYPERTENSION
     Dosage: UNK
     Route: 048

REACTIONS (6)
  - Pulmonary alveolar haemorrhage [Fatal]
  - Hypovolaemic shock [Fatal]
  - Interstitial lung disease [Unknown]
  - Bronchitis [Unknown]
  - Respiratory failure [Unknown]
  - Product use issue [Unknown]
